FAERS Safety Report 7120629-X (Version None)
Quarter: 2010Q4

REPORT INFORMATION
  Report Type: 
  Country: None (occurrence: None)
  Receive Date: 20101124
  Receipt Date: 20101117
  Transmission Date: 20110411
  Serious: Yes (Other)
  Sender: FDA-Public Use
  Company Number: US-PFIZER INC-2010152289

PATIENT
  Age: 23 Year
  Sex: Female

DRUGS (2)
  1. VIRACEPT [Suspect]
     Dosage: 2500 MG, 1X/DAY
     Route: 048
     Dates: start: 20090721, end: 20100630
  2. COMBIVIR [Suspect]
     Dosage: 2 DF, DAILY
     Route: 048
     Dates: start: 20090721, end: 20100630

REACTIONS (1)
  - ABORTION SPONTANEOUS [None]
